FAERS Safety Report 14173054 (Version 2)
Quarter: 2018Q1

REPORT INFORMATION
  Report Type: Report from Study
  Country: JP (occurrence: JP)
  Receive Date: 20171109
  Receipt Date: 20180301
  Transmission Date: 20180508
  Serious: Yes (Hospitalization, Other)
  Sender: FDA-Public Use
  Company Number: JP-AMGEN-JPNNI2017168924

PATIENT
  Age: 81 Year
  Sex: Female

DRUGS (5)
  1. DARBEPOETIN ALFA [Suspect]
     Active Substance: DARBEPOETIN ALFA
     Indication: PRODUCT USED FOR UNKNOWN INDICATION
     Dosage: UNK
     Route: 042
     Dates: start: 20170301, end: 20170319
  2. DARBEPOETIN ALFA [Suspect]
     Active Substance: DARBEPOETIN ALFA
     Dosage: UNK
     Route: 042
     Dates: start: 20170428, end: 20170506
  3. DARBEPOETIN ALFA [Suspect]
     Active Substance: DARBEPOETIN ALFA
     Dosage: UNK
     Route: 042
     Dates: start: 20170331, end: 20170422
  4. DARBEPOETIN ALFA [Suspect]
     Active Substance: DARBEPOETIN ALFA
     Dosage: UNK
     Route: 042
     Dates: start: 20170726
  5. DARBEPOETIN ALFA [Suspect]
     Active Substance: DARBEPOETIN ALFA
     Dosage: UNK
     Route: 042
     Dates: start: 20170621, end: 20170721

REACTIONS (5)
  - Azotaemia [Recovering/Resolving]
  - Cardiac valve disease [Recovering/Resolving]
  - Hospitalisation [Recovering/Resolving]
  - Cardiac valve disease [Recovering/Resolving]
  - End stage renal disease [Recovering/Resolving]

NARRATIVE: CASE EVENT DATE: 20170620
